FAERS Safety Report 7921720 (Version 5)
Quarter: 2012Q4

REPORT INFORMATION
  Report Type: 
  Country: US (occurrence: US)
  Receive Date: 20110429
  Receipt Date: 20121130
  Transmission Date: 20130627
  Serious: Yes (Other)
  Sender: FDA-Public Use
  Company Number: US-ASTRAZENECA-2010SE49759

PATIENT
  Age: 49 Year
  Sex: Female

DRUGS (1)
  1. NEXIUM [Suspect]
     Route: 048

REACTIONS (15)
  - Tendon rupture [Unknown]
  - Gastrooesophageal reflux disease [Unknown]
  - Cough [Unknown]
  - Visual impairment [Unknown]
  - Renal disorder [Unknown]
  - Throat irritation [Unknown]
  - Aphagia [Unknown]
  - Dysphagia [Unknown]
  - Dyspepsia [Unknown]
  - Pharyngeal disorder [Unknown]
  - Eye disorder [Unknown]
  - Malaise [Unknown]
  - Abdominal pain upper [Unknown]
  - Malaise [Unknown]
  - Drug dose omission [Unknown]
